FAERS Safety Report 6997943-1 (Version None)
Quarter: 2010Q3

REPORT INFORMATION
  Report Type: 
  Country: None (occurrence: None)
  Receive Date: 20100902
  Receipt Date: 20100602
  Transmission Date: 20110219
  Serious: Yes (Other)
  Sender: FDA-Public Use
  Company Number: 232748USA

PATIENT
  Sex: Female

DRUGS (1)
  1. MYCOPHENOLATE MEFETIL [Suspect]
     Dosage: (500 MG),ORAL
     Route: 048

REACTIONS (3)
  - BLOOD UREA INCREASED [None]
  - RENAL IMPAIRMENT [None]
  - TUBULOINTERSTITIAL NEPHRITIS [None]
